FAERS Safety Report 4460656-4 (Version None)
Quarter: 2004Q3

REPORT INFORMATION
  Report Type: 
  Country: None (occurrence: None)
  Receive Date: 20040928
  Receipt Date: 20040713
  Transmission Date: 20050211
  Serious: No
  Sender: FDA-Public Use
  Company Number: US-GLAXOSMITHKLINE-A0518083A

PATIENT
  Age: 67 Year
  Sex: Male

DRUGS (5)
  1. ADVAIR DISKUS 100/50 [Suspect]
     Indication: ASTHMA
     Dosage: 1PUFF TWICE PER DAY
     Route: 055
  2. LISINOPRIL [Concomitant]
     Indication: BLOOD PRESSURE
     Dosage: 10MG PER DAY
     Dates: start: 20020101
  3. LIPITOR [Concomitant]
     Dosage: 10MG PER DAY
     Dates: start: 20020101
  4. OMEPRAZOLE [Concomitant]
     Dosage: 20MG PER DAY
     Dates: start: 20040313
  5. VITAMIN [Concomitant]

REACTIONS (3)
  - COUGH [None]
  - DRUG INEFFECTIVE [None]
  - PHARMACEUTICAL PRODUCT COMPLAINT [None]
